FAERS Safety Report 11088383 (Version 6)
Quarter: 2016Q1

REPORT INFORMATION
  Report Type: Report from Study
  Country: DE (occurrence: DE)
  Receive Date: 20150504
  Receipt Date: 20160112
  Transmission Date: 20160525
  Serious: Yes (Life-Threatening, Hospitalization)
  Sender: FDA-Public Use
  Company Number: PHHO2014DE014911

PATIENT
  Age: 67 Year
  Sex: Female
  Weight: 53 kg

DRUGS (2)
  1. AIN457 [Suspect]
     Active Substance: SECUKINUMAB
     Indication: PUSTULAR PSORIASIS
     Dosage: 300 MG, UNK
     Route: 058
     Dates: start: 20140219, end: 20141224
  2. LOSARTAN. [Concomitant]
     Active Substance: LOSARTAN
     Indication: HYPERTENSION
     Dosage: 100 MG
     Route: 048
     Dates: start: 201302

REACTIONS (7)
  - Chronic obstructive pulmonary disease [Recovering/Resolving]
  - Multiple organ dysfunction syndrome [Recovered/Resolved]
  - Arrhythmia [Recovering/Resolving]
  - Cardiomyopathy [Recovering/Resolving]
  - Coronary artery disease [Recovering/Resolving]
  - Cardiogenic shock [Recovered/Resolved]
  - Atrial thrombosis [Recovering/Resolving]

NARRATIVE: CASE EVENT DATE: 20141027
